FAERS Safety Report 7055322 (Version 3)
Quarter: 2022Q4

REPORT INFORMATION
  Report Type: Spontaneous
  Country: US (occurrence: US)
  Receive Date: 20090720
  Receipt Date: 20221018
  Transmission Date: 20230113
  Serious: Yes (Hospitalization)
  Sender: FDA-Public Use
  Company Number: US-JNJFOC-20090702038

PATIENT
  Age: 14 Year
  Sex: Male

DRUGS (6)
  1. SPORANOX [Suspect]
     Active Substance: ITRACONAZOLE
     Indication: Histoplasmosis
     Route: 065
  2. SPORANOX [Suspect]
     Active Substance: ITRACONAZOLE
     Route: 065
  3. DOXORUBICIN HYDROCHLORIDE [Suspect]
     Active Substance: DOXORUBICIN HYDROCHLORIDE
     Indication: Hodgkin^s disease
     Route: 065
  4. VINBLASTINE [Interacting]
     Active Substance: VINBLASTINE
     Indication: Hodgkin^s disease
     Route: 065
  5. METHOTREXATE [Interacting]
     Active Substance: METHOTREXATE
     Indication: Hodgkin^s disease
     Route: 065
  6. PREDNISONE [Interacting]
     Active Substance: PREDNISONE
     Indication: Hodgkin^s disease
     Route: 065

REACTIONS (8)
  - Relapsing fever [Unknown]
  - Neutropenia [Recovering/Resolving]
  - Mucosal inflammation [Unknown]
  - Abdominal pain [Unknown]
  - Neuralgia [Recovered/Resolved]
  - Paraesthesia [Unknown]
  - Drug interaction [Unknown]
  - Feeding disorder [Unknown]
